FAERS Safety Report 19345250 (Version 4)
Quarter: 2022Q2

REPORT INFORMATION
  Report Type: Spontaneous
  Country: US (occurrence: US)
  Receive Date: 20210531
  Receipt Date: 20220404
  Transmission Date: 20220721
  Serious: No
  Sender: FDA-Public Use
  Company Number: US-SA-SAC20210525000831

PATIENT
  Age: 47 Year
  Sex: Female

DRUGS (2)
  1. FABRAZYME [Suspect]
     Active Substance: AGALSIDASE BETA
     Indication: Fabry^s disease
     Dosage: 105 MG, QOW
     Route: 042
     Dates: start: 201909
  2. FABRAZYME [Suspect]
     Active Substance: AGALSIDASE BETA
     Dosage: 5 MG, QOW
     Route: 042

REACTIONS (12)
  - Formication [Unknown]
  - Anhidrosis [Unknown]
  - Temperature intolerance [Unknown]
  - Pain [Unknown]
  - Muscular weakness [Unknown]
  - Burning sensation [Unknown]
  - Arthralgia [Unknown]
  - Paraesthesia [Unknown]
  - Myalgia [Unknown]
  - Pain in extremity [Unknown]
  - Product dose omission issue [Unknown]
  - Product dose omission issue [Unknown]

NARRATIVE: CASE EVENT DATE: 20210719
